FAERS Safety Report 21756204 (Version 1)
Quarter: 2022Q4

REPORT INFORMATION
  Report Type: Spontaneous
  Country: US (occurrence: US)
  Receive Date: 20221220
  Receipt Date: 20221220
  Transmission Date: 20230113
  Serious: No
  Sender: FDA-Public Use
  Company Number: US-ROMARKLABS-2022-US-000032

PATIENT
  Age: 89 Year
  Sex: Male

DRUGS (3)
  1. ALINIA [Suspect]
     Active Substance: NITAZOXANIDE
     Indication: Abdominal discomfort
     Dosage: 1 TABLET TWICE DAILY
     Route: 048
     Dates: start: 20221207, end: 20221207
  2. AMLODIPINE [Concomitant]
     Active Substance: AMLODIPINE BESYLATE
     Indication: Hypertension
  3. ATORVASTATIN [Concomitant]
     Active Substance: ATORVASTATIN
     Indication: Hypercholesterolaemia

REACTIONS (1)
  - Drug hypersensitivity [Recovered/Resolved]

NARRATIVE: CASE EVENT DATE: 20221207
